FAERS Safety Report 4851510-4 (Version None)
Quarter: 2005Q4

REPORT INFORMATION
  Report Type: 
  Country: None (occurrence: None)
  Receive Date: 20051212
  Receipt Date: 20020703
  Transmission Date: 20060501
  Serious: Yes (Hospitalization)
  Sender: FDA-Public Use
  Company Number: US-ROCHE-316706

PATIENT
  Age: 48 Year
  Sex: Male
  Weight: 77.9 kg

DRUGS (11)
  1. INTERFERON ALFA-2A [Suspect]
     Route: 058
     Dates: start: 20020102, end: 20020703
  2. RIBAVIRIN [Suspect]
     Dosage: WITH FOOD.
     Route: 048
     Dates: start: 20020102, end: 20020703
  3. SAQUINAVIR [Concomitant]
     Dates: start: 19980513
  4. ZERIT [Concomitant]
     Dates: start: 19980513
  5. LAMIVUDINE [Concomitant]
     Dates: start: 19980513
  6. RITONAVIR [Concomitant]
     Dates: start: 19980513
  7. INDOCIN [Concomitant]
     Dates: start: 20011003
  8. UNKNOWN DRUG [Concomitant]
     Dosage: DRUG REPORTED AS SSA.
     Dates: start: 20011003
  9. METHADONE [Concomitant]
     Dates: start: 19980615
  10. PERCOCET [Concomitant]
     Dates: start: 20010221
  11. PRILOSEC [Concomitant]
     Dates: start: 20010221

REACTIONS (4)
  - EXOSTOSIS [None]
  - GOUT [None]
  - NECK PAIN [None]
  - NERVE COMPRESSION [None]
